FAERS Safety Report 16442957 (Version 1)
Quarter: 2019Q2

REPORT INFORMATION
  Report Type: Spontaneous
  Country: BR (occurrence: BR)
  Receive Date: 20190617
  Receipt Date: 20190617
  Transmission Date: 20190711
  Serious: Yes (Other)
  Sender: FDA-Public Use
  Company Number: PHHY2019BR137424

PATIENT
  Sex: Female

DRUGS (1)
  1. ACICLOVIR [Suspect]
     Active Substance: ACYCLOVIR
     Indication: ORAL HERPES
     Dosage: UNK
     Route: 065
     Dates: start: 20190531

REACTIONS (4)
  - Dysentery [Unknown]
  - Lip haemorrhage [Unknown]
  - Lip discolouration [Unknown]
  - Abdominal pain [Unknown]
